FAERS Safety Report 6379683-5 (Version None)
Quarter: 2009Q3

REPORT INFORMATION
  Report Type: 
  Country: None (occurrence: None)
  Receive Date: 20090924
  Receipt Date: 20090924
  Transmission Date: 20100115
  Serious: No
  Sender: FDA-Public Use
  Company Number: None

PATIENT
  Age: 63 Year
  Sex: Male
  Weight: 103.4 kg

DRUGS (2)
  1. ABCIXIMAB [Suspect]
     Dosage: 26 MG ONCE IV
     Route: 042
     Dates: start: 20090706, end: 20090706
  2. HEPARIN [Suspect]
     Dosage: 5000 UNITS OTHER SQ
     Route: 058
     Dates: start: 20090703, end: 20090707

REACTIONS (3)
  - EPISTAXIS [None]
  - PLATELET AGGREGATION [None]
  - THROMBOCYTOPENIA [None]
